FAERS Safety Report 13177171 (Version 1)
Quarter: 2017Q1

REPORT INFORMATION
  Report Type: Report from Study
  Country: US (occurrence: US)
  Receive Date: 20170201
  Receipt Date: 20170201
  Transmission Date: 20170428
  Serious: No
  Sender: FDA-Public Use
  Company Number: US-EXELIXIS-CABO-16007303

PATIENT
  Sex: Male

DRUGS (9)
  1. CABOMETYX [Suspect]
     Active Substance: CABOZANTINIB S-MALATE
     Indication: RENAL CANCER
     Dosage: 60 MG, QD
     Route: 048
     Dates: start: 20160702, end: 201610
  2. MAGNESIUM [Concomitant]
     Active Substance: MAGNESIUM
  3. IBUPROFEN. [Concomitant]
     Active Substance: IBUPROFEN
  4. ATENOLOL. [Concomitant]
     Active Substance: ATENOLOL
  5. ATIVAN [Concomitant]
     Active Substance: LORAZEPAM
  6. HYDROCODONE [Concomitant]
     Active Substance: HYDROCODONE
  7. NORVASC [Concomitant]
     Active Substance: AMLODIPINE BESYLATE
  8. FLUCONAZOLE. [Concomitant]
     Active Substance: FLUCONAZOLE
  9. NORCO [Concomitant]
     Active Substance: ACETAMINOPHEN\HYDROCODONE BITARTRATE

REACTIONS (1)
  - Feeling cold [Unknown]
